FAERS Safety Report 5203230-4 (Version None)
Quarter: 2006Q4

REPORT INFORMATION
  Report Type: 
  Country: None (occurrence: None)
  Receive Date: 20061016
  Receipt Date: 20060127
  Transmission Date: 20070319
  Serious: Yes (Other)
  Sender: FDA-Public Use
  Company Number: 2006014272

PATIENT
  Age: 77 Year
  Sex: Male
  Weight: 72.5755 kg

DRUGS (3)
  1. GABAPENTIN [Suspect]
     Indication: BACK PAIN
     Dosage: 1800 MG (600 MG, 3 IN 1 D)
     Dates: start: 20051201, end: 20060124
  2. NEXIUM [Concomitant]
  3. ZOCOR [Concomitant]

REACTIONS (5)
  - DRY MOUTH [None]
  - ORAL DISCOMFORT [None]
  - SLEEP DISORDER [None]
  - TOOTH DISORDER [None]
  - TOOTHACHE [None]
